FAERS Safety Report 6234019-5 (Version None)
Quarter: 2009Q2

REPORT INFORMATION
  Report Type: 
  Country: None (occurrence: None)
  Receive Date: 20090618
  Receipt Date: 20090608
  Transmission Date: 20091009
  Serious: No
  Sender: FDA-Public Use
  Company Number: US-BIOGENIDEC-2009BI015721

PATIENT
  Age: 53 Year
  Sex: Male
  Weight: 56 kg

DRUGS (3)
  1. AVONEX [Suspect]
     Indication: MULTIPLE SCLEROSIS
     Route: 030
     Dates: start: 20090418, end: 20090516
  2. BUFFERIN [Concomitant]
     Indication: CARDIOVASCULAR EVENT PROPHYLAXIS
     Route: 048
  3. METFORMIN HCL [Concomitant]
     Indication: TYPE 2 DIABETES MELLITUS
     Route: 048

REACTIONS (12)
  - ABASIA [None]
  - BLOOD GLUCOSE INCREASED [None]
  - CATARACT OPERATION [None]
  - CONTUSION [None]
  - DYSARTHRIA [None]
  - FALL [None]
  - FEELING DRUNK [None]
  - HEMIPARESIS [None]
  - INJECTION SITE ERYTHEMA [None]
  - LOSS OF CONTROL OF LEGS [None]
  - PARAPARESIS [None]
  - WEIGHT DECREASED [None]
